FAERS Safety Report 19604065 (Version 2)
Quarter: 2021Q3

REPORT INFORMATION
  Report Type: Report from Study
  Country: US (occurrence: US)
  Receive Date: 20210723
  Receipt Date: 20210922
  Transmission Date: 20211014
  Serious: Yes (Other)
  Sender: FDA-Public Use
  Company Number: US-DECIPHERA PHARMACEUTICALS LLC-2018-US-000027

PATIENT
  Age: 70 Year
  Sex: Female
  Weight: 58.7 kg

DRUGS (41)
  1. DCC?2618 [Suspect]
     Active Substance: RIPRETINIB
     Dosage: 100 MILLIGRAM, QD (AM ?ONCE IN THE MORNING)
     Route: 048
     Dates: start: 20180809, end: 20180926
  2. OXYCODONE [Concomitant]
     Active Substance: OXYCODONE
     Indication: MUSCULOSKELETAL CHEST PAIN
     Dosage: UNK
     Route: 048
     Dates: start: 20180213
  3. TYLENOL [Concomitant]
     Active Substance: ACETAMINOPHEN
     Indication: MUSCULOSKELETAL PAIN
  4. VITAMINS NOS [Concomitant]
     Active Substance: VITAMINS
     Indication: SUPPLEMENTATION THERAPY
     Dosage: UNK
     Route: 048
  5. DCC?2618 [Suspect]
     Active Substance: RIPRETINIB
     Dosage: 100 MILLIGRAM, QD (AM?ONCE IN THE MORNING)
     Route: 048
     Dates: start: 20190511, end: 20190523
  6. DCC?2618 [Suspect]
     Active Substance: RIPRETINIB
     Dosage: 100 MILLIGRAM, QD, (AM ? ONCE IN THE MORNING)
     Route: 048
     Dates: start: 20200101, end: 20200127
  7. ANASTROZOLE. [Concomitant]
     Active Substance: ANASTROZOLE
     Indication: BREAST CANCER
     Dosage: UNK
     Route: 048
     Dates: start: 2016, end: 20191225
  8. LIDOCAINE. [Concomitant]
     Active Substance: LIDOCAINE
     Indication: MUSCULOSKELETAL CHEST PAIN
     Dosage: UNK
     Route: 062
     Dates: start: 20180213
  9. DCC?2618 [Suspect]
     Active Substance: RIPRETINIB
     Dosage: 100 MILLIGRAM, QD (AM ?ONCE IN THE MORNING)
     Route: 048
     Dates: start: 20180928, end: 20181212
  10. DCC?2618 [Suspect]
     Active Substance: RIPRETINIB
     Dosage: 100 MILLIGRAM, QD,  (AM ?ONCE IN THE MORNING)
     Dates: start: 20190301, end: 20190509
  11. DCC?2618 [Suspect]
     Active Substance: RIPRETINIB
     Dosage: 100 MILLIGRAM, QD (AM?ONCE IN THE MORNING)
     Route: 048
     Dates: start: 20180703, end: 20180806
  12. DCC?2618 [Suspect]
     Active Substance: RIPRETINIB
     Dosage: 100 MILLIGRAM, QD (AM?ONCE IN THE MORNING)
     Route: 048
     Dates: start: 20181214, end: 20190221
  13. DCC?2618 [Suspect]
     Active Substance: RIPRETINIB
     Dosage: 100 MILLIGRAM, QD,  (AM ?ONCE IN THE MORNING)
     Route: 048
     Dates: start: 20190618, end: 20190713
  14. DCC?2618 [Suspect]
     Active Substance: RIPRETINIB
     Dosage: 100 MILLIGRAM, QD (AM, ONCE IN THE MORNING)
     Route: 048
     Dates: start: 20191226, end: 20191230
  15. DCC?2618 [Suspect]
     Active Substance: RIPRETINIB
     Dosage: 100 MILLIGRAM, QD, (AM ?ONCE IN THE MORNING)
     Route: 048
     Dates: start: 20200204, end: 20200422
  16. OXYCODONE [Concomitant]
     Active Substance: OXYCODONE
     Indication: ABDOMINAL PAIN
  17. NORVASC [Concomitant]
     Active Substance: AMLODIPINE BESYLATE
     Indication: HYPERTENSION
     Dosage: 10 MILLIGRAM
     Route: 048
     Dates: start: 20180305, end: 20190618
  18. SIMETHICONE (DIMETHICONE) [Concomitant]
     Active Substance: DIMETHICONE
     Indication: FLATULENCE
     Dosage: UNK
     Route: 065
     Dates: start: 20180309, end: 20180309
  19. DCC?2618 [Suspect]
     Active Substance: RIPRETINIB
     Dosage: 100 MILLIGRAM, QD, (AM ONCE IN THE MORNING)
     Route: 048
     Dates: start: 20191030, end: 20191210
  20. DCC?2618 [Suspect]
     Active Substance: RIPRETINIB
     Dosage: 100 MILLIGRAM, QD (PM?ONCE IN THE AFTERNOON/EVENING)
     Route: 048
     Dates: start: 20200714, end: 20200809
  21. HYDROCODONE BITARTRATE AND ACETAMINOPHEN [Concomitant]
     Active Substance: ACETAMINOPHEN\HYDROCODONE BITARTRATE
     Indication: TUMOUR PAIN
     Dosage: UNK
     Route: 048
  22. CHOLECALCIFEROL [Concomitant]
     Active Substance: CHOLECALCIFEROL
     Indication: PROPHYLAXIS
     Dosage: UNK
     Route: 048
     Dates: start: 2016
  23. IBUPROFEN. [Concomitant]
     Active Substance: IBUPROFEN
     Dosage: 150 MG, QD
     Route: 048
     Dates: start: 20180302, end: 20180315
  24. DCC?2618 [Suspect]
     Active Substance: RIPRETINIB
     Dosage: 100 MILLIGRAM, QD, (AM ? ONCE IN THE MORNING)
     Route: 048
     Dates: start: 20191212, end: 20191216
  25. DCC?2618 [Suspect]
     Active Substance: RIPRETINIB
     Dosage: 100 MILLIGRAM, QD (PM ? ONCE IN THE AFTERNOON/EVENING)
     Route: 048
     Dates: start: 20200531, end: 20200605
  26. DCC?2618 [Suspect]
     Active Substance: RIPRETINIB
     Dosage: 100 MILLIGRAM, QD (PM?ONCE IN THE AFTERNOON/EVENING)
     Route: 048
     Dates: start: 20200815, end: 20201005
  27. IBUPROFEN. [Concomitant]
     Active Substance: IBUPROFEN
     Indication: CHEST PAIN
     Dosage: UNK, TABLET
     Route: 048
     Dates: start: 20180214, end: 20180309
  28. DCC?2618 [Suspect]
     Active Substance: RIPRETINIB
     Dosage: 100 MILLIGRAM, QD (AM?ONCE IN THE MORNING)
     Route: 048
     Dates: start: 20180403, end: 20180630
  29. DCC?2618 [Suspect]
     Active Substance: RIPRETINIB
     Dosage: 100 MILLIGRAM, QD, (AM ? ONCE IN THE MORNING)
     Route: 048
     Dates: start: 20190824, end: 20191028
  30. DCC?2618 [Suspect]
     Active Substance: RIPRETINIB
     Dosage: 100 MILLIGRAM, QD (PM?ONCE IN THE AFTERNOON/EVENING), HELD FOR MINOR SURGERY (ENDOSCOPY) PER PROTOCO
     Route: 048
     Dates: start: 20200424, end: 20200523
  31. DCC?2618 [Suspect]
     Active Substance: RIPRETINIB
     Dosage: 100 MILLIGRAM, QD (PM ? ONCE IN THE AFTERNOON/EVENING)
     Route: 048
     Dates: start: 20200607, end: 20200625
  32. DCC?2618 [Suspect]
     Active Substance: RIPRETINIB
     Dosage: 100 MILLIGRAM, QD (PM?ONCE IN THE AFTERNOON/EVENING)
     Route: 048
     Dates: start: 20200629, end: 20200701
  33. METOPROLOL SUCCINATE. [Concomitant]
     Active Substance: METOPROLOL SUCCINATE
     Indication: HYPERTENSION
     Dosage: UNK
     Route: 048
     Dates: start: 20180214, end: 20180327
  34. TYLENOL [Concomitant]
     Active Substance: ACETAMINOPHEN
     Indication: PAIN
     Dosage: UNK
     Route: 048
     Dates: start: 20180228
  35. LISINOPRIL. [Concomitant]
     Active Substance: LISINOPRIL
     Indication: HYPERTENSION
     Dosage: 5 MILLIGRAM
     Route: 048
     Dates: start: 20180214, end: 20200224
  36. DCC?2618 [Suspect]
     Active Substance: RIPRETINIB
     Indication: GASTROINTESTINAL STROMAL TUMOUR
     Dosage: 150 MILLIGRAM, QD (AM?ONCE IN THE MORNING)
     Route: 048
     Dates: start: 20180302, end: 20180315
  37. DCC?2618 [Suspect]
     Active Substance: RIPRETINIB
     Dosage: 100 MILLIGRAM, QD, (AM? ONCE IN THE MORNING)
     Route: 048
     Dates: start: 20190716, end: 20190822
  38. DCC?2618 [Suspect]
     Active Substance: RIPRETINIB
     Dosage: 100 MILLIGRAM, QD, (AM ? ONCE IN THE MORNING)
     Route: 048
     Dates: start: 20191218, end: 20191224
  39. DCC?2618 [Suspect]
     Active Substance: RIPRETINIB
     Dosage: 100 MILLIGRAM, QD, (PM ? ONCE IN THE AFTERNOON/EVENING)
     Route: 048
     Dates: start: 20200627, end: 20200627
  40. OMEPRAZOLE. [Concomitant]
     Active Substance: OMEPRAZOLE
     Indication: GASTROOESOPHAGEAL REFLUX DISEASE
     Dosage: UNK
     Route: 048
     Dates: start: 2016, end: 20180911
  41. CHOLECALCIFEROL [Concomitant]
     Active Substance: CHOLECALCIFEROL
     Indication: SUPPLEMENTATION THERAPY

REACTIONS (1)
  - Pancreatitis [Recovered/Resolved with Sequelae]

NARRATIVE: CASE EVENT DATE: 20180316
